FAERS Safety Report 7400539-0 (Version None)
Quarter: 2011Q1

REPORT INFORMATION
  Report Type: 
  Country: None (occurrence: None)
  Receive Date: 20110329
  Receipt Date: 20110321
  Transmission Date: 20110831
  Serious: Yes (Death, Hospitalization, Other)
  Sender: FDA-Public Use
  Company Number: 2011SP002576

PATIENT
  Age: 71 Year
  Sex: Female
  Weight: 56.6996 kg

DRUGS (15)
  1. NYSTATIN [Concomitant]
  2. ABT-888 [Suspect]
     Indication: GLIOBLASTOMA MULTIFORME
     Dosage: 10 MG, BID, PO
     Route: 048
     Dates: start: 20101222, end: 20101222
  3. ABT-888 [Suspect]
     Indication: GLIOBLASTOMA MULTIFORME
     Dosage: 10 MG, BID, PO
     Route: 048
     Dates: start: 20101206, end: 20101221
  4. PANTOPRAZOLE SODIUM [Concomitant]
  5. ZOLPIDEM TARTRATE [Concomitant]
  6. MULTI-VITAMIN [Concomitant]
  7. ENOXAPARIN SODIUM [Concomitant]
  8. FUROSEMIDE [Concomitant]
  9. METHYLPREDNISOLONE ACETATE [Concomitant]
  10. BACTRIM [Concomitant]
  11. ONDANSETRON [Concomitant]
  12. LEVETIRACETAM [Concomitant]
  13. TEMOZOLOMIDE [Suspect]
     Indication: GLIOBLASTOMA MULTIFORME
     Dosage: PO
     Route: 048
     Dates: start: 20101206, end: 20101221
  14. TEMOZOLOMIDE [Suspect]
     Indication: GLIOBLASTOMA MULTIFORME
     Dosage: PO
     Route: 048
     Dates: start: 20101222, end: 20101222
  15. DOCUSATE SODIUM [Concomitant]

REACTIONS (6)
  - DEEP VEIN THROMBOSIS [None]
  - PULMONARY EMBOLISM [None]
  - PANCYTOPENIA [None]
  - ALVEOLITIS ALLERGIC [None]
  - PNEUMOCYSTIS JIROVECI PNEUMONIA [None]
  - PULMONARY OEDEMA [None]
